FAERS Safety Report 15126836 (Version 1)
Quarter: 2018Q3

REPORT INFORMATION
  Report Type: Spontaneous
  Country: US (occurrence: US)
  Receive Date: 20180710
  Receipt Date: 20180710
  Transmission Date: 20181010
  Serious: No
  Sender: FDA-Public Use
  Company Number: US-PERRIGO-17US027733

PATIENT
  Sex: Female

DRUGS (2)
  1. MICONAZOLE 1 [Suspect]
     Active Substance: MICONAZOLE NITRATE
     Indication: VULVOVAGINAL MYCOTIC INFECTION
     Dosage: 1 APPLICATION, UNKNOWN
     Route: 061
     Dates: start: 20171014
  2. MICONAZOLE 1 [Suspect]
     Active Substance: MICONAZOLE NITRATE
     Indication: VULVOVAGINAL MYCOTIC INFECTION
     Dosage: 1200 MG, SINGLE
     Route: 067
     Dates: start: 20171014, end: 20171014

REACTIONS (4)
  - Vulvovaginal burning sensation [Recovering/Resolving]
  - Vulvovaginal swelling [Unknown]
  - Drug ineffective [Unknown]
  - Vulvovaginal pain [Unknown]

NARRATIVE: CASE EVENT DATE: 20171014
